FAERS Safety Report 4598806-1 (Version None)
Quarter: 2005Q1

REPORT INFORMATION
  Report Type: 
  Country: None (occurrence: None)
  Receive Date: 20050301
  Receipt Date: 20050218
  Transmission Date: 20050727
  Serious: Yes (Hospitalization)
  Sender: FDA-Public Use
  Company Number: APP200500106

PATIENT
  Age: 70 Year
  Sex: Female
  Weight: 61.916 kg

DRUGS (4)
  1. IFOSFAMIDE [Suspect]
     Indication: ENDOMETRIAL CANCER
     Dosage: 3750 MG/M2 (3750 MG/M2, 1 IN 1 D), INTRAVENOUS
     Route: 042
     Dates: start: 20050216, end: 20050217
  2. ALLEGRA [Concomitant]
  3. ZOCOR [Concomitant]
  4. MESNA [Concomitant]

REACTIONS (7)
  - BALANCE DISORDER [None]
  - CONFUSIONAL STATE [None]
  - DISORIENTATION [None]
  - DIZZINESS [None]
  - DYSKINESIA [None]
  - GAIT DISTURBANCE [None]
  - HAEMOGLOBIN DECREASED [None]
